FAERS Safety Report 7286201-6 (Version None)
Quarter: 2011Q1

REPORT INFORMATION
  Report Type: 
  Country: None (occurrence: None)
  Receive Date: 20110131
  Receipt Date: 20110117
  Transmission Date: 20110831
  Serious: Yes (Other)
  Sender: FDA-Public Use
  Company Number: AXC-2010-000347

PATIENT
  Age: 50 Year
  Sex: Male

DRUGS (4)
  1. ASACOL [Suspect]
     Indication: COLITIS ULCERATIVE
  2. MERCAPTOPURINE [Concomitant]
  3. PREDNISOLONE [Suspect]
     Indication: COLITIS ULCERATIVE
  4. AZATHIOPRINE [Suspect]
     Indication: COLITIS ULCERATIVE
     Dosage: 50 MG, QD,

REACTIONS (2)
  - HEPATITIS [None]
  - DRUG HYPERSENSITIVITY [None]
